FAERS Safety Report 21359455 (Version 1)
Quarter: 2022Q3

REPORT INFORMATION
  Report Type: Spontaneous
  Country: US (occurrence: US)
  Receive Date: 20220921
  Receipt Date: 20220921
  Transmission Date: 20221026
  Serious: No
  Sender: FDA-Public Use
  Company Number: US-BIOVITRUM-2022US10898

PATIENT
  Age: 42 Year
  Sex: Male

DRUGS (1)
  1. KINERET [Suspect]
     Active Substance: ANAKINRA
     Indication: Still^s disease
     Dates: start: 20190413

REACTIONS (4)
  - Rash [Unknown]
  - Contusion [Unknown]
  - Body tinea [Unknown]
  - Off label use [Unknown]

NARRATIVE: CASE EVENT DATE: 20190413
